FAERS Safety Report 25944562 (Version 2)
Quarter: 2025Q4

REPORT INFORMATION
  Report Type: Spontaneous
  Country: US (occurrence: US)
  Receive Date: 20251021
  Receipt Date: 20251126
  Transmission Date: 20260117
  Serious: No
  Sender: PFIZER
  Company Number: US-PFIZER INC-202500192187

PATIENT
  Age: 38 Year
  Sex: Female

DRUGS (1)
  1. IBRANCE [Suspect]
     Active Substance: PALBOCICLIB
     Dosage: 125 MG, CYCLIC, FOR 21 DAYS ON AND 7 DAYS OFF EVERY 28 DAY CYCLE
     Route: 048

REACTIONS (4)
  - Fatigue [Unknown]
  - White blood cell count decreased [Unknown]
  - Diarrhoea [Unknown]
  - Libido decreased [Unknown]
